FAERS Safety Report 26179801 (Version 1)
Quarter: 2025Q4

REPORT INFORMATION
  Report Type: Spontaneous
  Country: US (occurrence: None)
  Receive Date: 20251218
  Receipt Date: 20251218
  Transmission Date: 20260117
  Serious: Yes (Hospitalization, Disabling)
  Sender: FDA-CTU
  Company Number: None

PATIENT
  Age: 53 Year
  Sex: Female
  Weight: 82.35 kg

DRUGS (12)
  1. LEVAQUIN [Suspect]
     Active Substance: LEVOFLOXACIN
     Indication: Ear infection
     Dates: start: 20120713, end: 20120713
  2. Nexium 40mg daily [Concomitant]
  3. Vitamin D3 2000iu daily [Concomitant]
  4. Alendronate 70mg weekly [Concomitant]
  5. Albuterol Inhaler prn. [Concomitant]
  6. Gabapentin 300mg tid [Concomitant]
  7. VITAMIN K [Concomitant]
     Active Substance: PHYTONADIONE
  8. Boron 6mg [Concomitant]
  9. Zinc 30mg [Concomitant]
  10. FISH OIL [Concomitant]
     Active Substance: FISH OIL
  11. Joint Supplement [Concomitant]
  12. PROBIOTICS NOS [Concomitant]
     Active Substance: PROBIOTICS NOS

REACTIONS (3)
  - Paraesthesia [None]
  - Skin exfoliation [None]
  - Pain [None]

NARRATIVE: CASE EVENT DATE: 20120713
